FAERS Safety Report 6043841-X (Version None)
Quarter: 2009Q1

REPORT INFORMATION
  Report Type: 
  Country: None (occurrence: None)
  Receive Date: 20090120
  Receipt Date: 20090108
  Transmission Date: 20090719
  Serious: Yes (Other)
  Sender: FDA-Public Use
  Company Number: US-ROCHE-602796

PATIENT
  Sex: Female

DRUGS (2)
  1. ACCUTANE [Suspect]
     Dosage: FORM: PILL, DOSE: ALTERNATING 80 MG AND 100 MG
     Route: 065
     Dates: start: 20080701
  2. SOTRET [Suspect]
     Indication: ACNE
     Dosage: DOSE: 80 MG AND 120 MG ALTERNATE DAILY.
     Route: 048
     Dates: start: 20080701

REACTIONS (2)
  - GALACTORRHOEA [None]
  - MENORRHAGIA [None]
